FAERS Safety Report 8162824-7 (Version None)
Quarter: 2012Q1

REPORT INFORMATION
  Report Type: 
  Country: None (occurrence: None)
  Receive Date: 20120221
  Receipt Date: 20120202
  Transmission Date: 20120608
  Serious: Yes (Hospitalization, Disabling)
  Sender: FDA-Public Use
  Company Number: JPI-P-016015

PATIENT
  Age: 79 Year
  Sex: Male

DRUGS (17)
  1. XYREM [Suspect]
     Indication: SOMNOLENCE
     Dosage: 8 GM (4 GM, 2 IN 1 D), ORAL; 5.5 GM (2.75 GM, 2 IN 1 D), ORAL
     Route: 048
     Dates: start: 20120126
  2. XYREM [Suspect]
     Indication: SLEEP APNOEA SYNDROME
     Dosage: 8 GM (4 GM, 2 IN 1 D), ORAL; 5.5 GM (2.75 GM, 2 IN 1 D), ORAL
     Route: 048
     Dates: start: 20120126
  3. XYREM [Suspect]
     Indication: NARCOLEPSY
     Dosage: 8 GM (4 GM, 2 IN 1 D), ORAL; 5.5 GM (2.75 GM, 2 IN 1 D), ORAL
     Route: 048
     Dates: start: 20120126
  4. XYREM [Suspect]
     Indication: SOMNOLENCE
     Dosage: 8 GM (4 GM, 2 IN 1 D), ORAL; 5.5 GM (2.75 GM, 2 IN 1 D), ORAL
     Route: 048
     Dates: start: 20090212, end: 20110712
  5. XYREM [Suspect]
     Indication: SLEEP APNOEA SYNDROME
     Dosage: 8 GM (4 GM, 2 IN 1 D), ORAL; 5.5 GM (2.75 GM, 2 IN 1 D), ORAL
     Route: 048
     Dates: start: 20090212, end: 20110712
  6. XYREM [Suspect]
     Indication: NARCOLEPSY
     Dosage: 8 GM (4 GM, 2 IN 1 D), ORAL; 5.5 GM (2.75 GM, 2 IN 1 D), ORAL
     Route: 048
     Dates: start: 20090212, end: 20110712
  7. XYREM [Suspect]
     Indication: SOMNOLENCE
     Dosage: 8 GM (4 GM, 2 IN 1 D), ORAL; 5.5 GM (2.75 GM, 2 IN 1 D), ORAL
     Route: 048
     Dates: start: 20110713, end: 20120113
  8. XYREM [Suspect]
     Indication: SLEEP APNOEA SYNDROME
     Dosage: 8 GM (4 GM, 2 IN 1 D), ORAL; 5.5 GM (2.75 GM, 2 IN 1 D), ORAL
     Route: 048
     Dates: start: 20110713, end: 20120113
  9. XYREM [Suspect]
     Indication: NARCOLEPSY
     Dosage: 8 GM (4 GM, 2 IN 1 D), ORAL; 5.5 GM (2.75 GM, 2 IN 1 D), ORAL
     Route: 048
     Dates: start: 20110713, end: 20120113
  10. TRAMADOL HCL [Concomitant]
  11. TESTOSTERONE [Concomitant]
  12. POLYETHYLENE GLYCOL [Concomitant]
  13. ASPIRIN [Concomitant]
  14. GABAPENTIN [Concomitant]
  15. OMEPRAZOLE [Concomitant]
  16. FEXOFENADINE [Concomitant]
  17. SULINDAC [Concomitant]

REACTIONS (8)
  - SEPSIS [None]
  - THROMBOSIS [None]
  - GASTROINTESTINAL PAIN [None]
  - ATRIAL FIBRILLATION [None]
  - INAPPROPRIATE SCHEDULE OF DRUG ADMINISTRATION [None]
  - WOUND DEHISCENCE [None]
  - ABDOMINAL PAIN LOWER [None]
  - EYELID OEDEMA [None]
